FAERS Safety Report 9349546 (Version 1)
Quarter: 2013Q2

REPORT INFORMATION
  Report Type: Spontaneous
  Country: FR (occurrence: FR)
  Receive Date: 20130614
  Receipt Date: 20130614
  Transmission Date: 20140414
  Serious: Yes (Life-Threatening, Hospitalization)
  Sender: FDA-Public Use
  Company Number: FR-GLAXOSMITHKLINE-B0896884A

PATIENT
  Age: 41 Year
  Sex: Female

DRUGS (3)
  1. ARIXTRA [Suspect]
     Indication: PRODUCT USED FOR UNKNOWN INDICATION
     Dosage: 9INJ PER DAY
     Route: 058
     Dates: start: 20130328, end: 20130328
  2. OXYNORM [Concomitant]
     Indication: PRODUCT USED FOR UNKNOWN INDICATION
     Dosage: 5MG PER DAY
     Route: 065
     Dates: start: 20130328, end: 20130328
  3. LEXOMIL [Concomitant]
     Indication: PRODUCT USED FOR UNKNOWN INDICATION
     Route: 065
     Dates: start: 20130328, end: 20130328

REACTIONS (7)
  - Shock haemorrhagic [Recovered/Resolved]
  - Confusional state [Unknown]
  - Haematoma [Unknown]
  - Tachycardia [Unknown]
  - Haemorrhage [Unknown]
  - Retroperitoneal haematoma [Unknown]
  - Intentional overdose [Unknown]
